FAERS Safety Report 9848089 (Version 1)
Quarter: 2013Q4

REPORT INFORMATION
  Report Type: Spontaneous
  Country: US (occurrence: None)
  Receive Date: 20131223
  Receipt Date: 20131223
  Transmission Date: 20140711
  Serious: No
  Sender: FDA-Public Use
  Company Number: CABO-13003619

PATIENT
  Age: 25 Year
  Sex: Male

DRUGS (5)
  1. COMETRIQ [Suspect]
     Indication: THYROID CANCER
     Route: 048
     Dates: start: 20130917
  2. LEVOTHYROXINE (LEVOTHYROXINE SODIUM) [Concomitant]
  3. PERCOCET (OXYCODONE HYDROCHLORIDE, PARACETAMOL) [Concomitant]
  4. CALCITRAL (CALCIUM CARBONATE) [Concomitant]
  5. ALMOND OIL (PRUNUS DULCIS OIL) [Concomitant]

REACTIONS (2)
  - Skin discolouration [None]
  - Vomiting [None]
